FAERS Safety Report 7721722-0 (Version None)
Quarter: 2011Q3

REPORT INFORMATION
  Report Type: 
  Country: None (occurrence: None)
  Receive Date: 20110831
  Receipt Date: 20110825
  Transmission Date: 20111222
  Serious: Yes (Other)
  Sender: FDA-Public Use
  Company Number: ZA-GLAXOSMITHKLINE-B0743121A

PATIENT
  Sex: Female

DRUGS (2)
  1. VALPROATE SODIUM [Concomitant]
     Indication: CONVULSION
  2. LAMICTAL [Suspect]
     Indication: EPILEPSY
     Route: 065
     Dates: start: 20100415, end: 20100416

REACTIONS (20)
  - ANXIETY [None]
  - FEAR [None]
  - CRYING [None]
  - ABNORMAL BEHAVIOUR [None]
  - STEVENS-JOHNSON SYNDROME [None]
  - PSYCHOMOTOR HYPERACTIVITY [None]
  - DELUSION [None]
  - PAIN [None]
  - CONVULSION [None]
  - EATING DISORDER [None]
  - MUSCLE SPASMS [None]
  - ILL-DEFINED DISORDER [None]
  - SCREAMING [None]
  - INSOMNIA [None]
  - VOMITING [None]
  - TRICHOTILLOMANIA [None]
  - FEELING ABNORMAL [None]
  - COORDINATION ABNORMAL [None]
  - DYSPHAGIA [None]
  - OVERDOSE [None]
